FAERS Safety Report 7834391-6 (Version None)
Quarter: 2011Q4

REPORT INFORMATION
  Report Type: 
  Country: None (occurrence: None)
  Receive Date: 20111024
  Receipt Date: 20111017
  Transmission Date: 20120403
  Serious: Yes (Other)
  Sender: FDA-Public Use
  Company Number: PHEH2011US00461

PATIENT
  Sex: Male

DRUGS (2)
  1. AREDIA [Suspect]
     Dosage: UNK
  2. ZOMETA [Suspect]
     Dosage: UNK

REACTIONS (9)
  - PAIN [None]
  - OSTEONECROSIS OF JAW [None]
  - EXPOSED BONE IN JAW [None]
  - ANXIETY [None]
  - HAEMORRHAGE [None]
  - SINUSITIS [None]
  - ANHEDONIA [None]
  - BONE NEOPLASM MALIGNANT [None]
  - INJURY [None]
